FAERS Safety Report 23691874 (Version 2)
Quarter: 2024Q2

REPORT INFORMATION
  Report Type: Report from Study
  Country: IN (occurrence: IN)
  Receive Date: 20240401
  Receipt Date: 20240419
  Transmission Date: 20240716
  Serious: No
  Sender: FDA-Public Use
  Company Number: IN-ADVANZ PHARMA-202403002671

PATIENT

DRUGS (2)
  1. ZONISAMIDE [Suspect]
     Active Substance: ZONISAMIDE
     Indication: Epilepsy
     Dosage: UNK (ZONEGRAN) (LOW DOSE, FOR ALMOST 5-6 YEARS)
     Route: 048
  2. ZONISAMIDE [Suspect]
     Active Substance: ZONISAMIDE
     Dosage: 200 MG, BID (ZONEGRAN)
     Route: 048
     Dates: start: 20230801

REACTIONS (1)
  - Drug ineffective [Unknown]
